FAERS Safety Report 6083598 (Version 2)
Quarter: 2013Q3

REPORT INFORMATION
  Report Type: Spontaneous
  Country: CA (occurrence: None)
  Receive Date: 20060629
  Receipt Date: 20130822
  Transmission Date: 20140515
  Serious: Yes (Hospitalization)
  Sender: FDA-Public Use
  Company Number: 2006US-02632

PATIENT
  Age: 43 Year
  Sex: Female

DRUGS (1)
  1. MORPHINE [Suspect]
     Indication: PAIN
     Dosage: 0.5 MG/ML ^ 1, INTRAVENOUS
     Route: 042

REACTIONS (10)
  - Accidental overdose [None]
  - Respiratory failure [None]
  - Apnoea [None]
  - Cyanosis [None]
  - Somnolence [None]
  - Drug administration error [None]
  - Inadequate analgesia [None]
  - Medical device complication [None]
  - Incorrect drug administration rate [None]
  - Self-medication [None]
